FAERS Safety Report 6391267-1 (Version None)
Quarter: 2009Q4

REPORT INFORMATION
  Report Type: 
  Country: None (occurrence: None)
  Receive Date: 20091007
  Receipt Date: 20090928
  Transmission Date: 20100525
  Serious: Yes (Disabling)
  Sender: FDA-Public Use
  Company Number: AU-ASTRAZENECA-2009SE15869

PATIENT
  Age: 46 Year
  Sex: Male
  Weight: 95 kg

DRUGS (1)
  1. CRESTOR [Suspect]
     Route: 048
     Dates: start: 20080320, end: 20090220

REACTIONS (1)
  - DIPLOPIA [None]
